FAERS Safety Report 6770653-1 (Version None)
Quarter: 2010Q2

REPORT INFORMATION
  Report Type: 
  Country: None (occurrence: None)
  Receive Date: 20100615
  Receipt Date: 20100607
  Transmission Date: 20101027
  Serious: Yes (Hospitalization, Other)
  Sender: FDA-Public Use
  Company Number: US-WATSON-2010-07737

PATIENT
  Sex: Female

DRUGS (13)
  1. BISOPROLOL FUMARATE AND HYDROCHLOROTHIAZIDE [Suspect]
     Indication: HYPERTENSION
     Dosage: 2.5 MG, DAILY
     Route: 048
     Dates: start: 20070101, end: 20100518
  2. VEGF TRAP-EYE [Suspect]
     Indication: MACULAR DEGENERATION
     Dosage: MASKED (VGFT 0.5 MG OR 2.0 MG OR RANIBIZUMAB 0.5 MG) (Q4WKS) INTRAVITREAL
     Dates: start: 20090709
  3. ARAVA [Suspect]
     Indication: RHEUMATOID ARTHRITIS
     Dosage: 20 MG, DAILY
     Route: 048
     Dates: start: 20100401, end: 20100512
  4. LOVAZA [Concomitant]
     Indication: SUPPLEMENTATION THERAPY
     Dosage: QD
     Route: 048
     Dates: start: 20090617
  5. CLONIDINE [Concomitant]
     Indication: HYPERTENSION
     Dosage: 0.1 MG, DAILY
     Route: 048
     Dates: start: 20090617
  6. SIMVASTATIN [Concomitant]
     Indication: BLOOD CHOLESTEROL INCREASED
     Dosage: 20 MG, DAILY
     Route: 048
     Dates: start: 20070101, end: 20100515
  7. REGLAN [Concomitant]
     Indication: GASTROOESOPHAGEAL REFLUX DISEASE
     Dosage: 10 MG, TID
     Route: 048
     Dates: start: 20090617
  8. FOLIC ACID [Concomitant]
     Indication: SUPPLEMENTATION THERAPY
     Dosage: 1 MG, DAILY
     Route: 048
     Dates: start: 19990101
  9. PIROXICAM [Concomitant]
     Indication: ARTHRITIS
     Dosage: 20 MG, DAILY
     Route: 048
     Dates: start: 20060101
  10. CHLORTHALIDONE [Concomitant]
     Indication: HYPERTENSION
     Dosage: 25 MG, QOD
     Route: 048
     Dates: start: 20090429, end: 20100101
  11. MULTI VITS [Concomitant]
     Indication: SUPPLEMENTATION THERAPY
     Dosage: QOD
     Route: 048
     Dates: start: 19950101
  12. METHOTREXATE [Concomitant]
     Indication: ARTHRITIS
     Dosage: 2.5 MG, 1/WEEK
     Route: 048
     Dates: start: 20060101, end: 20100518
  13. PREDNISONE [Concomitant]
     Indication: RHEUMATOID ARTHRITIS
     Dosage: 10 MG, DAILY
     Route: 048
     Dates: start: 20100410, end: 20100516

REACTIONS (2)
  - CORONARY ARTERY DISEASE [None]
  - HYPOKALAEMIA [None]
